FAERS Safety Report 4488799-X (Version None)
Quarter: 2004Q4

REPORT INFORMATION
  Report Type: 
  Country: None (occurrence: None)
  Receive Date: 20041029
  Receipt Date: 20041021
  Transmission Date: 20050328
  Serious: Yes (Other)
  Sender: FDA-Public Use
  Company Number: GB-MERCK-0410USA03260

PATIENT
  Age: 60 Year
  Sex: Male

DRUGS (2)
  1. PRINIVIL [Suspect]
     Indication: HYPERTENSION
     Route: 048
     Dates: start: 20040910, end: 20040916
  2. PRINIVIL [Suspect]
     Route: 048
     Dates: start: 20040917, end: 20041005

REACTIONS (3)
  - HEADACHE [None]
  - NAUSEA [None]
  - PHOTOPSIA [None]
